FAERS Safety Report 6069701-6 (Version None)
Quarter: 2009Q1

REPORT INFORMATION
  Report Type: 
  Country: None (occurrence: None)
  Receive Date: 20090209
  Receipt Date: 20090203
  Transmission Date: 20090719
  Serious: Yes (Hospitalization)
  Sender: FDA-Public Use
  Company Number: US-ASTRAZENECA-2009UW03293

PATIENT
  Age: 35 Year
  Sex: Male

DRUGS (2)
  1. SEROQUEL [Suspect]
     Route: 048
  2. COCAINE [Suspect]
     Route: 065

REACTIONS (4)
  - DRUG SCREEN POSITIVE [None]
  - HYPOTENSION [None]
  - OVERDOSE [None]
  - SEDATION [None]
